FAERS Safety Report 7413533-0 (Version None)
Quarter: 2011Q2

REPORT INFORMATION
  Report Type: 
  Country: None (occurrence: None)
  Receive Date: 20110405
  Receipt Date: 20110331
  Transmission Date: 20111010
  Serious: Yes (Life-Threatening, Hospitalization, Other)
  Sender: FDA-Public Use
  Company Number: 2011SP014731

PATIENT
  Age: 66 Year
  Sex: Male

DRUGS (2)
  1. TEMODAR [Suspect]
     Dosage: 400 MG, QD, PO
     Route: 048
     Dates: start: 20101201
  2. TEMODAR [Suspect]
     Dosage: 400 MG, QD, PO
     Route: 048
     Dates: start: 20110329

REACTIONS (4)
  - VOMITING [None]
  - ASTHENIA [None]
  - MUSCLE FATIGUE [None]
  - MYOCARDIAL INFARCTION [None]
